FAERS Safety Report 20579806 (Version 1)
Quarter: 2022Q1

REPORT INFORMATION
  Report Type: Spontaneous
  Country: US (occurrence: US)
  Receive Date: 20220310
  Receipt Date: 20220310
  Transmission Date: 20220423
  Serious: No
  Sender: FDA-Public Use
  Company Number: US-GILEAD-2022-0573132

PATIENT
  Sex: Male

DRUGS (10)
  1. VEMLIDY [Suspect]
     Active Substance: TENOFOVIR ALAFENAMIDE FUMARATE
     Indication: Hepatitis viral
     Dosage: 1 DOSAGE FORM, QD
     Route: 048
  2. BACTRIM DS [Concomitant]
     Active Substance: SULFAMETHOXAZOLE\TRIMETHOPRIM
  3. TACROLIMUS [Concomitant]
     Active Substance: TACROLIMUS
  4. ATORVASTATIN CALCIUM [Concomitant]
     Active Substance: ATORVASTATIN CALCIUM
  5. PANTOPRAZOLE SODIUM [Concomitant]
     Active Substance: PANTOPRAZOLE SODIUM
  6. METHOCARBAMOL [Concomitant]
     Active Substance: METHOCARBAMOL
  7. BENADRYL ALLERGY [Concomitant]
     Active Substance: DIPHENHYDRAMINE HYDROCHLORIDE
  8. STARLIX [Concomitant]
     Active Substance: NATEGLINIDE
  9. DEXTROSE [Concomitant]
     Active Substance: DEXTROSE
  10. PROGRAF [Concomitant]
     Active Substance: TACROLIMUS

REACTIONS (1)
  - Intentional product use issue [Not Recovered/Not Resolved]
